FAERS Safety Report 5754919-X (Version None)
Quarter: 2008Q2

REPORT INFORMATION
  Report Type: 
  Country: None (occurrence: None)
  Receive Date: 20080527
  Receipt Date: 20080502
  Transmission Date: 20081010
  Serious: Yes (Hospitalization)
  Sender: FDA-Public Use
  Company Number: 08-013

PATIENT
  Age: 36 Year
  Sex: Female
  Weight: 73.4827 kg

DRUGS (23)
  1. LORTAB [Suspect]
     Indication: PROCEDURAL PAIN
     Dosage: EVERY 4-6HRS ORALLY
     Route: 048
     Dates: start: 20080401
  2. ASPIRIN [Concomitant]
  3. CHANTIX [Concomitant]
  4. MULTI-VITAMIN [Concomitant]
  5. PEPCID [Concomitant]
  6. MIDAZOLAM HCL [Concomitant]
  7. FENTANYL TRANSDERMAL SYSTEM [Concomitant]
  8. PROPOFOL [Concomitant]
  9. LIDOCAINE [Concomitant]
  10. ZEMURON [Concomitant]
  11. ANCEF [Concomitant]
  12. VIVELLE [Concomitant]
  13. DEMEROL [Concomitant]
  14. ASPIRIN [Concomitant]
  15. MULTI-VITAMIN [Concomitant]
  16. CHANTIX [Concomitant]
  17. MILK OF MAGNESIA [Concomitant]
  18. DUVOID [Concomitant]
  19. ZOFRAN [Concomitant]
  20. TUMS [Concomitant]
  21. CALCIUM [Concomitant]
  22. VITAMIN B-12 [Concomitant]
  23. MULTI-VITAMIN [Concomitant]

REACTIONS (2)
  - ILEUS [None]
  - URINARY RETENTION [None]
